FAERS Safety Report 13088353 (Version 1)
Quarter: 2017Q1

REPORT INFORMATION
  Report Type: Spontaneous
  Country: US (occurrence: US)
  Receive Date: 20170104
  Receipt Date: 20170104
  Transmission Date: 20170428
  Serious: Yes (Disabling)
  Sender: FDA-Public Use
  Company Number: None

PATIENT
  Age: 36 Year
  Sex: Female
  Weight: 51.75 kg

DRUGS (2)
  1. CLOMIPRAMINE MYLAN ` [Suspect]
     Active Substance: CLOMIPRAMINE
     Indication: DEPRESSION
     Dosage: ?          QUANTITY:3 CAPSULE(S);?
     Route: 048
     Dates: start: 20050801, end: 20081022
  2. WOMEN^S DAILY VITAMIN [Concomitant]

REACTIONS (2)
  - Aphasia [None]
  - Dissociation [None]

NARRATIVE: CASE EVENT DATE: 20070801
